FAERS Safety Report 21169210 (Version 1)
Quarter: 2022Q3

REPORT INFORMATION
  Report Type: Spontaneous
  Country: NL (occurrence: NL)
  Receive Date: 20220804
  Receipt Date: 20220804
  Transmission Date: 20221026
  Serious: Yes (Other)
  Sender: FDA-Public Use
  Company Number: NL-TAKEDA-2022TJP068440

PATIENT
  Age: 74 Year
  Sex: Male

DRUGS (1)
  1. HUMAN IMMUNOGLOBULIN G [Suspect]
     Active Substance: HUMAN IMMUNOGLOBULIN G
     Indication: Prostate cancer metastatic
     Dosage: UNK
     Route: 042

REACTIONS (2)
  - Autonomic neuropathy [Unknown]
  - Orthostatic hypotension [Unknown]
